FAERS Safety Report 9171127 (Version 1)
Quarter: 2013Q1

REPORT INFORMATION
  Report Type: Spontaneous
  Country: SE (occurrence: None)
  Receive Date: 20130315
  Receipt Date: 20130315
  Transmission Date: 20140127
  Serious: Yes (Death, Life-Threatening, Hospitalization)
  Sender: FDA-Public Use
  Company Number: UTC-029972

PATIENT
  Age: 43 Year
  Sex: Male

DRUGS (6)
  1. REMODULIN(INJECTION FOR INFUSION) (TREPROSTINIL SODIUM) [Suspect]
     Indication: SYSTEMIC SCLEROSIS
     Dosage: 5.04 UG/KG (0.0035 UG/KG,1 IN 1 MIN),SUBCUTANEOUS
     Route: 058
  2. REMODULIN(INJECTION FOR INFUSION) (TREPROSTINIL SODIUM) [Suspect]
     Indication: PULMONARY ARTERIAL HYPERTENSION
     Dosage: 5.04 UG/KG (0.0035 UG/KG,1 IN 1 MIN),SUBCUTANEOUS
     Route: 058
  3. OMEPRAZOLE(UNKNOWN) [Concomitant]
  4. BOSENTAN(UNKNOWN) [Concomitant]
  5. SILDENAFIL(UNKNOWN) [Concomitant]
  6. WARFARIN(UNKNOWN) [Concomitant]

REACTIONS (10)
  - Intra-abdominal haemorrhage [None]
  - Right ventricular failure [None]
  - Condition aggravated [None]
  - Scrotal oedema [None]
  - Infusion site pain [None]
  - Hypotension [None]
  - Haemoglobin decreased [None]
  - Ascites [None]
  - Visceral congestion [None]
  - Vasodilation procedure [None]
